FAERS Safety Report 25878012 (Version 1)
Quarter: 2025Q4

REPORT INFORMATION
  Report Type: Spontaneous
  Country: US (occurrence: None)
  Receive Date: 20251002
  Receipt Date: 20251002
  Transmission Date: 20260118
  Serious: Yes (Life-Threatening, Hospitalization)
  Sender: FDA-CTU
  Company Number: None

PATIENT
  Age: 48 Year
  Sex: Female
  Weight: 75.8 kg

DRUGS (2)
  1. VENOFER [Suspect]
     Active Substance: IRON SUCROSE
     Indication: Anaemia
     Dosage: FREQUENCY : DAILY;?
     Route: 041
     Dates: start: 20250929, end: 20250929
  2. VENOFER [Concomitant]
     Active Substance: IRON SUCROSE
     Dates: start: 20250929, end: 20250929

REACTIONS (2)
  - Infusion related reaction [None]
  - Anaphylactic shock [None]

NARRATIVE: CASE EVENT DATE: 20250929
